FAERS Safety Report 4587565-4 (Version None)
Quarter: 2005Q1

REPORT INFORMATION
  Report Type: 
  Country: None (occurrence: None)
  Receive Date: 20050125
  Receipt Date: 20040914
  Transmission Date: 20050727
  Serious: No
  Sender: FDA-Public Use
  Company Number: USA040978128

PATIENT
  Age: 71 Year
  Sex: Female
  Weight: 52 kg

DRUGS (3)
  1. FORTEO [Suspect]
     Indication: OSTEOPOROSIS
     Dosage: 20 UG/ 1 DAY
     Dates: start: 20040826
  2. VITAMINS [Concomitant]
  3. CALCIUM D [Concomitant]

REACTIONS (4)
  - COLD SWEAT [None]
  - HEADACHE [None]
  - HYPERTENSION [None]
  - SKIN TIGHTNESS [None]
